FAERS Safety Report 13136901 (Version 1)
Quarter: 2017Q1

REPORT INFORMATION
  Report Type: Spontaneous
  Country: GB (occurrence: GB)
  Receive Date: 20170123
  Receipt Date: 20170123
  Transmission Date: 20170428
  Serious: Yes (Life-Threatening, Hospitalization, Disabling, Congenital Anomaly, Other)
  Sender: FDA-Public Use
  Company Number: GB-VIIV HEALTHCARE LIMITED-GB2017005436

PATIENT
  Age: 1 Year
  Sex: Female

DRUGS (2)
  1. COMBIVIR [Suspect]
     Active Substance: LAMIVUDINE\ZIDOVUDINE
     Indication: RETROVIRAL INFECTION
     Dosage: 1 DF, QD
     Route: 064
     Dates: start: 20040116
  2. VIRAMUNE [Suspect]
     Active Substance: NEVIRAPINE
     Indication: RETROVIRAL INFECTION
     Dosage: 200 MG, BID
     Dates: start: 20040116

REACTIONS (2)
  - Congenital retinoblastoma [Not Recovered/Not Resolved]
  - Foetal exposure during pregnancy [Unknown]

NARRATIVE: CASE EVENT DATE: 200509
